FAERS Safety Report 12779029 (Version 1)
Quarter: 2016Q3

REPORT INFORMATION
  Report Type: Spontaneous
  Country: US (occurrence: US)
  Receive Date: 20160926
  Receipt Date: 20160926
  Transmission Date: 20161109
  Serious: No
  Sender: FDA-Public Use
  Company Number: US-JAZZ-2016-US-011451

PATIENT
  Sex: Female
  Weight: 184 kg

DRUGS (13)
  1. MIRAPEX [Concomitant]
     Active Substance: PRAMIPEXOLE DIHYDROCHLORIDE
     Route: 048
  2. ARMOUR THYROID [Concomitant]
     Active Substance: THYROID, PORCINE
  3. BELSOMRA [Concomitant]
     Active Substance: SUVOREXANT
     Route: 048
  4. NUVIGIL [Concomitant]
     Active Substance: ARMODAFINIL
  5. ZOSTAVAX [Concomitant]
     Active Substance: VARICELLA-ZOSTER VIRUS STRAIN OKA/MERCK LIVE ANTIGEN
  6. MIRTAZAPINE. [Concomitant]
     Active Substance: MIRTAZAPINE
     Route: 048
  7. PROVIGIL [Concomitant]
     Active Substance: MODAFINIL
  8. XYREM [Suspect]
     Active Substance: SODIUM OXYBATE
     Indication: SOMNOLENCE
     Dosage: 3.5 G, BID
     Route: 048
     Dates: start: 201406, end: 201406
  9. XYREM [Suspect]
     Active Substance: SODIUM OXYBATE
     Dosage: 4 G, BID
     Route: 048
     Dates: start: 201406, end: 201406
  10. DEPLIN [Concomitant]
     Active Substance: LEVOMEFOLATE CALCIUM
     Route: 048
  11. XYREM [Suspect]
     Active Substance: SODIUM OXYBATE
     Dosage: 4.5 G, BID
     Route: 048
     Dates: start: 201406
  12. EFUDEX [Concomitant]
     Active Substance: FLUOROURACIL
     Route: 048
  13. AMBIEN [Concomitant]
     Active Substance: ZOLPIDEM TARTRATE

REACTIONS (1)
  - Drug ineffective [Unknown]
